FAERS Safety Report 7770385-7 (Version None)
Quarter: 2011Q3

REPORT INFORMATION
  Report Type: 
  Country: None (occurrence: None)
  Receive Date: 20110922
  Receipt Date: 20100827
  Transmission Date: 20111222
  Serious: No
  Sender: FDA-Public Use
  Company Number: US-ASTRAZENECA-2010SE40391

PATIENT
  Age: 42 Year
  Sex: Male
  Weight: 72.6 kg

DRUGS (3)
  1. RITALIN [Concomitant]
  2. DEIPRAMINE [Concomitant]
  3. SEROQUEL [Suspect]
     Indication: SLEEP DISORDER
     Route: 048
     Dates: start: 20080101

REACTIONS (1)
  - BRONCHITIS [None]
